FAERS Safety Report 17791393 (Version 3)
Quarter: 2020Q3

REPORT INFORMATION
  Report Type: Spontaneous
  Country: TR (occurrence: TR)
  Receive Date: 20200515
  Receipt Date: 20200703
  Transmission Date: 20201102
  Serious: Yes (Life-Threatening, Hospitalization, Other)
  Sender: FDA-Public Use
  Company Number: TR-ACCORD-181253

PATIENT
  Age: 15 Year
  Sex: Male

DRUGS (1)
  1. LEVETIRACETAM. [Suspect]
     Active Substance: LEVETIRACETAM
     Indication: EPILEPSY
     Dosage: 10 MG/KG/DAY OF LEVETIRACETAM FOR LAST 1 YEAR

REACTIONS (1)
  - Rhabdomyolysis [Recovered/Resolved]
